FAERS Safety Report 5238276-3 (Version None)
Quarter: 2007Q1

REPORT INFORMATION
  Report Type: 
  Country: None (occurrence: None)
  Receive Date: 20070209
  Receipt Date: 20070209
  Transmission Date: 20070707
  Serious: Yes (Hospitalization)
  Sender: FDA-Public Use
  Company Number: None

PATIENT
  Age: 53 Year
  Weight: 59.8748 kg

DRUGS (1)
  1. CHANTIX [Suspect]
     Indication: SMOKING CESSATION THERAPY
     Dosage: 1MG 2 PO
     Route: 048
     Dates: start: 20070103, end: 20070202

REACTIONS (13)
  - ABASIA [None]
  - ASTHENIA [None]
  - BRONCHITIS [None]
  - CHILLS [None]
  - EPISTAXIS [None]
  - FATIGUE [None]
  - HEADACHE [None]
  - HYPERSOMNIA [None]
  - HYPOVENTILATION [None]
  - ILL-DEFINED DISORDER [None]
  - MOANING [None]
  - NAUSEA [None]
  - RESPIRATORY DISORDER [None]
